FAERS Safety Report 7262028-6 (Version None)
Quarter: 2011Q1

REPORT INFORMATION
  Report Type: 
  Country: None (occurrence: None)
  Receive Date: 20110130
  Receipt Date: 20101026
  Transmission Date: 20110831
  Serious: No
  Sender: FDA-Public Use
  Company Number: US-ABBOTT-10P-163-0681408-00

PATIENT
  Age: 19 Year
  Sex: Female

DRUGS (3)
  1. PEPCID COMPLETE [Concomitant]
     Indication: DYSPEPSIA
  2. ENTOCORT EC [Concomitant]
     Indication: CROHN'S DISEASE
     Dosage: 2 PILLS
  3. HUMIRA [Suspect]
     Indication: PRODUCT USED FOR UNKNOWN INDICATION
     Dosage: LOADING DOSE
     Dates: start: 20101024

REACTIONS (2)
  - AGITATION [None]
  - DYSPEPSIA [None]
